FAERS Safety Report 10904677 (Version 1)
Quarter: 2015Q1

REPORT INFORMATION
  Report Type: Spontaneous
  Country: US (occurrence: None)
  Receive Date: 20150309
  Receipt Date: 20150309
  Transmission Date: 20150721
  Serious: Yes (Death, Life-Threatening, Hospitalization)
  Sender: FDA-Public Use
  Company Number: None

PATIENT
  Age: 87 Year
  Sex: Female
  Weight: 81.6 kg

DRUGS (1)
  1. XARELTO [Suspect]
     Active Substance: RIVAROXABAN
     Indication: ATRIAL FIBRILLATION
     Route: 048

REACTIONS (5)
  - Intraventricular haemorrhage [None]
  - Cerebral haemorrhage [None]
  - Subdural haemorrhage [None]
  - Brain midline shift [None]
  - Subarachnoid haemorrhage [None]

NARRATIVE: CASE EVENT DATE: 20150112
